FAERS Safety Report 7334117-9 (Version None)
Quarter: 2011Q1

REPORT INFORMATION
  Report Type: 
  Country: None (occurrence: None)
  Receive Date: 20110307
  Receipt Date: 20110225
  Transmission Date: 20110831
  Serious: Yes (Disabling, Other)
  Sender: FDA-Public Use
  Company Number: US-PFIZER INC-US-WYE-H16196710

PATIENT
  Sex: Male

DRUGS (10)
  1. VENLAFAXINE HCL [Suspect]
     Indication: DEPRESSION
     Dosage: 75 MG, 2X/DAY
     Route: 065
     Dates: start: 20090601, end: 20100101
  2. OMEPRAZOLE [Concomitant]
     Indication: DYSPEPSIA
     Route: 065
  3. VENLAFAXINE HCL [Suspect]
     Dosage: TOOK 1/2 A 75 MG TABLET ONCE A DAY
     Route: 065
     Dates: start: 20100101, end: 20100101
  4. CETIRIZINE HYDROCHLORIDE [Concomitant]
     Indication: HYPERSENSITIVITY
     Route: 065
  5. XANAX [Suspect]
     Dosage: 0.5 MG, 3 TABS AT BEDTIME
  6. LORAZEPAM [Concomitant]
     Indication: SLEEP DISORDER
  7. VENLAFAXINE HCL [Suspect]
     Dosage: 75 MG, UNK
     Route: 065
     Dates: start: 20100101, end: 20100101
  8. LISINOPRIL AND HYDROCHLOROTHIAZIDE [Concomitant]
     Indication: HYPERTENSION
     Dosage: 12.5/20 MG DAILY
     Route: 065
  9. VENLAFAXINE HCL [Suspect]
     Dosage: TOOK 1/2 A 75MG TABLET EVERY OTHER DAY
     Route: 065
     Dates: start: 20100101, end: 20100515
  10. LORAZEPAM [Concomitant]
     Indication: ANXIETY
     Dosage: 0.5 MG, AS NEEDED
     Route: 065

REACTIONS (16)
  - WEIGHT INCREASED [None]
  - RAPID EYE MOVEMENTS SLEEP ABNORMAL [None]
  - PARAESTHESIA [None]
  - INSOMNIA [None]
  - LACERATION [None]
  - DEPRESSION [None]
  - ABNORMAL DREAMS [None]
  - CONDITION AGGRAVATED [None]
  - NIGHTMARE [None]
  - ABNORMAL SLEEP-RELATED EVENT [None]
  - TINNITUS [None]
  - ANXIETY [None]
  - DISTURBANCE IN ATTENTION [None]
  - CONTUSION [None]
  - FALL [None]
  - DRUG WITHDRAWAL SYNDROME [None]
